FAERS Safety Report 6080578-5 (Version None)
Quarter: 2009Q1

REPORT INFORMATION
  Report Type: 
  Country: None (occurrence: None)
  Receive Date: 20090217
  Receipt Date: 20090212
  Transmission Date: 20090719
  Serious: Yes (Other)
  Sender: FDA-Public Use
  Company Number: D0060485A

PATIENT
  Sex: Male

DRUGS (1)
  1. VIANI MITE [Suspect]
     Dosage: 75UG UNKNOWN
     Route: 055

REACTIONS (3)
  - CHILLS [None]
  - PNEUMONIA [None]
  - PYREXIA [None]
